FAERS Safety Report 11532582 (Version 4)
Quarter: 2015Q4

REPORT INFORMATION
  Report Type: Spontaneous
  Country: US (occurrence: US)
  Receive Date: 20150921
  Receipt Date: 20151204
  Transmission Date: 20160304
  Serious: Yes (Other)
  Sender: FDA-Public Use
  Company Number: US-ASTELLAS-2015US033451

PATIENT
  Age: 59 Year
  Sex: Male

DRUGS (2)
  1. XTANDI [Suspect]
     Active Substance: ENZALUTAMIDE
     Indication: METASTASES TO BONE
  2. XTANDI [Suspect]
     Active Substance: ENZALUTAMIDE
     Indication: PROSTATE CANCER STAGE IV
     Dosage: 160 MG, ONCE DAILY (4 OF THE 40 MG)
     Route: 048
     Dates: start: 2015

REACTIONS (13)
  - Malignant neoplasm progression [Recovered/Resolved]
  - Fall [Unknown]
  - Asthenia [Unknown]
  - Muscle spasms [Recovered/Resolved]
  - VIIth nerve paralysis [Recovered/Resolved]
  - Fatigue [Unknown]
  - Paraesthesia [Recovering/Resolving]
  - Back pain [Recovering/Resolving]
  - Decreased appetite [Unknown]
  - Arthralgia [Recovered/Resolved]
  - Hypoaesthesia [Recovering/Resolving]
  - Hot flush [Unknown]
  - Pain in extremity [Recovered/Resolved]

NARRATIVE: CASE EVENT DATE: 201508
